FAERS Safety Report 8760471 (Version 2)
Quarter: 2012Q4

REPORT INFORMATION
  Report Type: 
  Country: CA (occurrence: CA)
  Receive Date: 20120830
  Receipt Date: 20120911
  Transmission Date: 20130627
  Serious: Yes (Death)
  Sender: FDA-Public Use
  Company Number: PHHY2012CA074716

PATIENT
  Age: 90 Year
  Sex: Female

DRUGS (4)
  1. ACLASTA [Suspect]
     Indication: OSTEOPOROSIS
     Dosage: 5 mg, yearly
     Route: 042
     Dates: start: 20111125
  2. CRESTOR [Concomitant]
     Dosage: 5 mg, QD
  3. METOPROLOL [Concomitant]
     Dosage: 0.5 mg, BID
  4. ISOPTIN [Concomitant]
     Dosage: 240 mg, QD

REACTIONS (1)
  - Death [Fatal]
